FAERS Safety Report 22189628 (Version 2)
Quarter: 2023Q2

REPORT INFORMATION
  Report Type: Report from Study
  Country: CZ (occurrence: CZ)
  Receive Date: 20230410
  Receipt Date: 20230418
  Transmission Date: 20230722
  Serious: Yes (Other)
  Sender: FDA-Public Use
  Company Number: CZ-CELLTRION INC.-2022CZ013567

PATIENT

DRUGS (19)
  1. INFLIXIMAB [Suspect]
     Active Substance: INFLIXIMAB
     Indication: Inflammatory bowel disease
     Dosage: 5 MG/KG; FIRST INDUCTION APPLICATION - 0 WEEK (WEIGHT 54 KG); WEEK 0
     Route: 042
     Dates: start: 20220221, end: 20220405
  2. INFLIXIMAB [Suspect]
     Active Substance: INFLIXIMAB
     Dosage: 5 MG/KG; SECOND INDUCTION APPLICATION - 2 WEEK (WEIGHT 54 KG); WEEK 2
     Route: 042
  3. INFLIXIMAB [Suspect]
     Active Substance: INFLIXIMAB
     Dosage: 5 MG/KG; THIRD INDUCTION APPLICATION - 6 WEEK (WEIGHT 54 KG); WEEK 6
     Route: 042
     Dates: start: 20220405
  4. BUDESONIDE [Concomitant]
     Active Substance: BUDESONIDE
     Dosage: 9 MG 1-0-0
  5. ASACOL [Concomitant]
     Active Substance: MESALAMINE
     Dosage: 0-0-0-1
  6. CALTRATE [CALCIUM CARBONATE;COLECALCIFEROL] [Concomitant]
     Dosage: 1-0-0
  7. CHOLECALCIFEROL [Concomitant]
     Active Substance: CHOLECALCIFEROL
     Dosage: 10 DROP
  8. RIFAXIMIN [Concomitant]
     Active Substance: RIFAXIMIN
  9. IMODIUM [Concomitant]
     Active Substance: LOPERAMIDE HYDROCHLORIDE
  10. PENTASA [Concomitant]
     Active Substance: MESALAMINE
     Dosage: SACHET; 4G/2G
  11. MESALAMINE [Concomitant]
     Active Substance: MESALAMINE
  12. LACTOBACILLUS PLANTARUM [Concomitant]
     Active Substance: LACTOBACILLUS PLANTARUM
  13. FOLIC ACID [Concomitant]
     Active Substance: FOLIC ACID
  14. MEDROL [Concomitant]
     Active Substance: METHYLPREDNISOLONE
     Dosage: 32MG/16MG/8MG/4MG
  15. ESCHERICHIA COLI [Concomitant]
     Active Substance: ESCHERICHIA COLI
  16. IMASUP [Concomitant]
     Dosage: 125 MILLIGRAM
  17. BUDESONIDE [Concomitant]
     Active Substance: BUDESONIDE
     Dosage: 9 MILLIGRAM
  18. METRONIDAZOLE [Concomitant]
     Active Substance: METRONIDAZOLE
     Dosage: 250 MILLIGRAM
  19. PREDNISONE [Concomitant]
     Active Substance: PREDNISONE
     Dosage: 20 MILLIGRAM

REACTIONS (5)
  - Diarrhoea [Unknown]
  - Haematochezia [Unknown]
  - Rectal tenesmus [Unknown]
  - Abdominal pain [Unknown]
  - Drug ineffective [Unknown]

NARRATIVE: CASE EVENT DATE: 20220405
